FAERS Safety Report 11931326 (Version 1)
Quarter: 2016Q1

REPORT INFORMATION
  Report Type: Spontaneous
  Country: US (occurrence: US)
  Receive Date: 20160120
  Receipt Date: 20160120
  Transmission Date: 20160526
  Serious: No
  Sender: FDA-Public Use
  Company Number: US-INCYTE CORPORATION-2015IN005261

PATIENT
  Age: 49 Year
  Sex: Female

DRUGS (3)
  1. JAKAFI [Suspect]
     Active Substance: RUXOLITINIB
     Indication: POLYCYTHAEMIA VERA
     Dosage: 10 MG, BID
     Route: 048
     Dates: start: 20150905, end: 201510
  2. PERCOCET                           /00446701/ [Concomitant]
     Active Substance: ACETAMINOPHEN\OXYCODONE HYDROCHLORIDE\OXYCODONE TEREPHTHALATE
     Dosage: UNK
     Route: 065
  3. ASPIRIN. [Concomitant]
     Active Substance: ASPIRIN
     Dosage: UNK
     Route: 065

REACTIONS (12)
  - Pyrexia [Unknown]
  - Ear pain [Unknown]
  - Vomiting [Unknown]
  - Cough [Unknown]
  - Chest discomfort [Unknown]
  - Mouth ulceration [Recovering/Resolving]
  - Pulmonary congestion [Unknown]
  - Viral infection [Unknown]
  - Oropharyngeal pain [Unknown]
  - Malaise [Unknown]
  - Diarrhoea [Unknown]
  - Head discomfort [Unknown]

NARRATIVE: CASE EVENT DATE: 201510
